FAERS Safety Report 16781979 (Version 1)
Quarter: 2019Q3

REPORT INFORMATION
  Report Type: Report from Study
  Country: US (occurrence: US)
  Receive Date: 20190906
  Receipt Date: 20190906
  Transmission Date: 20191005
  Serious: Yes (Death, Hospitalization, Other)
  Sender: FDA-Public Use
  Company Number: US-BAUSCH-BL-2019-025281

PATIENT
  Age: 72 Year
  Sex: Male

DRUGS (1)
  1. XIFAXAN [Suspect]
     Active Substance: RIFAXIMIN
     Indication: HEPATIC ENCEPHALOPATHY
     Route: 048
     Dates: start: 2018

REACTIONS (5)
  - Feeling abnormal [Unknown]
  - Death [Fatal]
  - Pneumonia [Unknown]
  - Gait disturbance [Unknown]
  - Renal failure [Unknown]

NARRATIVE: CASE EVENT DATE: 20190814
